FAERS Safety Report 12035363 (Version 1)
Quarter: 2016Q1

REPORT INFORMATION
  Report Type: Report from Study
  Country: US (occurrence: US)
  Receive Date: 20160207
  Receipt Date: 20160207
  Transmission Date: 20160526
  Serious: No
  Sender: FDA-Public Use
  Company Number: US-ABBVIE-15K-163-1522889-00

PATIENT
  Age: 20 Year
  Sex: Male
  Weight: 140.74 kg

DRUGS (1)
  1. HUMIRA [Suspect]
     Active Substance: ADALIMUMAB
     Indication: PSORIASIS
     Route: 058

REACTIONS (7)
  - Ear pain [Recovering/Resolving]
  - Erythema [Recovering/Resolving]
  - Hypoacusis [Recovering/Resolving]
  - Ear swelling [Recovering/Resolving]
  - Ear discomfort [Recovering/Resolving]
  - Skin irritation [Recovering/Resolving]
  - Ear infection [Recovering/Resolving]

NARRATIVE: CASE EVENT DATE: 201512
